FAERS Safety Report 6059757-9 (Version None)
Quarter: 2009Q1

REPORT INFORMATION
  Report Type: 
  Country: None (occurrence: None)
  Receive Date: 20090130
  Receipt Date: 20090120
  Transmission Date: 20090719
  Serious: Yes (Other)
  Sender: FDA-Public Use
  Company Number: US-PFIZER INC-2008098979

PATIENT
  Sex: Female

DRUGS (11)
  1. CHANTIX [Suspect]
     Dosage: UNK
     Route: 048
     Dates: start: 20081003
  2. ELAVIL [Concomitant]
     Indication: DEPRESSION
  3. LARIAM [Concomitant]
  4. RESTORIL [Concomitant]
  5. TYLENOL [Concomitant]
  6. ACETYLSALICYLIC ACID SRT [Concomitant]
  7. ALEVE [Concomitant]
  8. LIBRIUM [Concomitant]
  9. ALL OTHER THERAPEUTIC PRODUCTS [Concomitant]
  10. LEXAPRO [Concomitant]
     Dosage: UNK
  11. ANXIOLYTICS [Concomitant]
     Dosage: UNK

REACTIONS (7)
  - ANXIETY [None]
  - DEPRESSION [None]
  - DRUG DOSE OMISSION [None]
  - HOMICIDAL IDEATION [None]
  - MENTAL IMPAIRMENT [None]
  - PAIN [None]
  - SELF-INJURIOUS IDEATION [None]
